FAERS Safety Report 19231809 (Version 1)
Quarter: 2021Q2

REPORT INFORMATION
  Report Type: Spontaneous
  Country: US (occurrence: US)
  Receive Date: 20210507
  Receipt Date: 20210507
  Transmission Date: 20210717
  Serious: No
  Sender: FDA-Public Use
  Company Number: US-TAKEDA-2021TUS028227

PATIENT
  Sex: Female
  Weight: 44 kg

DRUGS (4)
  1. SYMBICORT [Concomitant]
     Active Substance: BUDESONIDE\FORMOTEROL FUMARATE DIHYDRATE
     Dosage: UNK
  2. CIPROFLOXACIN. [Concomitant]
     Active Substance: CIPROFLOXACIN
     Dosage: UNK
  3. GLASSIA [Suspect]
     Active Substance: .ALPHA.1-PROTEINASE INHIBITOR HUMAN
     Indication: PRIMARY IMMUNODEFICIENCY SYNDROME
     Dosage: 3000 MILLIGRAM, 1/WEEK
     Route: 065
     Dates: start: 2013
  4. GLASSIA [Suspect]
     Active Substance: .ALPHA.1-PROTEINASE INHIBITOR HUMAN
     Indication: PRIMARY IMMUNODEFICIENCY SYNDROME
     Dosage: 3000 MILLIGRAM, 1/WEEK
     Route: 065
     Dates: start: 2013

REACTIONS (2)
  - Product dose omission issue [Unknown]
  - No adverse event [Unknown]
